FAERS Safety Report 24704737 (Version 2)
Quarter: 2025Q1

REPORT INFORMATION
  Report Type: Spontaneous
  Country: CA (occurrence: CA)
  Receive Date: 20241206
  Receipt Date: 20250314
  Transmission Date: 20250409
  Serious: Yes (Death, Life-Threatening, Hospitalization, Disabling, Other)
  Sender: NOVARTIS
  Company Number: CA-002147023-NVSC2022CA304953

PATIENT
  Age: 44 Year
  Sex: Female
  Weight: 97 kg

DRUGS (84)
  1. ERELZI [Suspect]
     Active Substance: ETANERCEPT-SZZS
     Indication: Rheumatoid arthritis
     Route: 058
  2. ERELZI [Suspect]
     Active Substance: ETANERCEPT-SZZS
     Route: 065
  3. METHOTREXATE [Suspect]
     Active Substance: METHOTREXATE
     Indication: Rheumatoid arthritis
     Route: 048
  4. METHOTREXATE [Suspect]
     Active Substance: METHOTREXATE
     Route: 048
  5. METHOTREXATE [Suspect]
     Active Substance: METHOTREXATE
     Route: 013
  6. METHOTREXATE [Suspect]
     Active Substance: METHOTREXATE
     Route: 065
  7. METHOTREXATE [Suspect]
     Active Substance: METHOTREXATE
     Route: 042
  8. METHOTREXATE [Suspect]
     Active Substance: METHOTREXATE
     Route: 065
  9. METHOTREXATE [Suspect]
     Active Substance: METHOTREXATE
     Route: 048
  10. METHOTREXATE [Suspect]
     Active Substance: METHOTREXATE
     Route: 048
  11. METHOTREXATE [Suspect]
     Active Substance: METHOTREXATE
     Route: 058
  12. METHOTREXATE [Suspect]
     Active Substance: METHOTREXATE
     Dosage: 20 MG, QW
     Route: 048
  13. PANTOPRAZOLE SODIUM [Suspect]
     Active Substance: PANTOPRAZOLE SODIUM
     Indication: Product used for unknown indication
     Route: 065
  14. PANTOPRAZOLE SODIUM [Suspect]
     Active Substance: PANTOPRAZOLE SODIUM
     Route: 048
  15. OXYCODONE [Suspect]
     Active Substance: OXYCODONE
     Indication: Product used for unknown indication
     Route: 065
  16. RITUXIMAB [Suspect]
     Active Substance: RITUXIMAB
     Indication: Rheumatoid arthritis
     Route: 042
  17. DICLOFENAC SODIUM [Suspect]
     Active Substance: DICLOFENAC SODIUM
     Indication: Product used for unknown indication
     Route: 065
  18. LEFLUNOMIDE [Suspect]
     Active Substance: LEFLUNOMIDE
     Indication: Product used for unknown indication
     Route: 065
  19. LEFLUNOMIDE [Suspect]
     Active Substance: LEFLUNOMIDE
     Route: 048
  20. OXYCODONE HYDROCHLORIDE [Suspect]
     Active Substance: OXYCODONE HYDROCHLORIDE
     Indication: Product used for unknown indication
     Route: 065
  21. DICLOFENAC [Suspect]
     Active Substance: DICLOFENAC
     Indication: Product used for unknown indication
     Route: 065
  22. DICLOFENAC [Suspect]
     Active Substance: DICLOFENAC
     Route: 048
  23. SECUKINUMAB [Suspect]
     Active Substance: SECUKINUMAB
     Indication: Product used for unknown indication
     Route: 065
  24. ALENDRONIC ACID [Suspect]
     Active Substance: ALENDRONIC ACID
     Indication: Rheumatoid arthritis
     Route: 048
  25. PREDNISOLONE [Suspect]
     Active Substance: PREDNISOLONE
     Indication: Product used for unknown indication
     Route: 065
  26. PREDNISOLONE [Suspect]
     Active Substance: PREDNISOLONE
     Route: 048
  27. PREDNISOLONE [Suspect]
     Active Substance: PREDNISOLONE
     Route: 048
  28. PREDNISOLONE [Suspect]
     Active Substance: PREDNISOLONE
     Route: 042
  29. OXYCODONE TEREPHTHALATE [Suspect]
     Active Substance: OXYCODONE TEREPHTHALATE
     Indication: Product used for unknown indication
     Route: 065
  30. CALTRATE [Suspect]
     Active Substance: CALCIUM CARBONATE
     Indication: Product used for unknown indication
     Route: 065
  31. PANADOL [Suspect]
     Active Substance: ACETAMINOPHEN
     Indication: Product used for unknown indication
     Route: 065
  32. PANADOL [Suspect]
     Active Substance: ACETAMINOPHEN
     Route: 048
  33. HYDROCORTISONE [Suspect]
     Active Substance: HYDROCORTISONE
     Indication: Rheumatoid arthritis
     Route: 065
  34. HYDROCORTISONE [Suspect]
     Active Substance: HYDROCORTISONE
     Route: 058
  35. HYDROCORTISONE [Suspect]
     Active Substance: HYDROCORTISONE
     Route: 048
  36. OXYCODONE AND ACETAMINOPHEN [Suspect]
     Active Substance: ACETAMINOPHEN\OXYCODONE HYDROCHLORIDE
     Indication: Rheumatoid arthritis
     Route: 065
  37. DICLOFENAC POTASSIUM [Suspect]
     Active Substance: DICLOFENAC POTASSIUM
     Indication: Product used for unknown indication
     Route: 065
  38. APREPITANT [Suspect]
     Active Substance: APREPITANT
     Indication: Rheumatoid arthritis
     Route: 042
  39. ASACOL [Suspect]
     Active Substance: MESALAMINE
     Indication: Rheumatoid arthritis
     Route: 065
  40. AZULFIDINE [Suspect]
     Active Substance: SULFASALAZINE
     Indication: Rheumatoid arthritis
     Route: 065
  41. CHLORAPREP [Suspect]
     Active Substance: CHLORHEXIDINE GLUCONATE\ISOPROPYL ALCOHOL
     Indication: Product used for unknown indication
     Route: 065
  42. CHLORAPREP [Suspect]
     Active Substance: CHLORHEXIDINE GLUCONATE\ISOPROPYL ALCOHOL
     Route: 048
  43. CLIOQUINOL [Suspect]
     Active Substance: CLIOQUINOL
     Indication: Product used for unknown indication
     Route: 065
  44. DILTIAZEM [Suspect]
     Active Substance: DILTIAZEM
     Indication: Rheumatoid arthritis
     Route: 065
  45. FLUMETHASONE PIVALATE [Suspect]
     Active Substance: FLUMETHASONE PIVALATE
     Indication: Rheumatoid arthritis
     Route: 065
  46. GOLIMUMAB [Suspect]
     Active Substance: GOLIMUMAB
     Indication: Rheumatoid arthritis
     Route: 058
  47. HYDROCORTISONE SODIUM SUCCINATE [Suspect]
     Active Substance: HYDROCORTISONE SODIUM SUCCINATE
     Indication: Rheumatoid arthritis
     Route: 048
  48. CETIRIZINE HYDROCHLORIDE\PSEUDOEPHEDRINE HYDROCHLORIDE [Suspect]
     Active Substance: CETIRIZINE HYDROCHLORIDE\PSEUDOEPHEDRINE HYDROCHLORIDE
     Indication: Rheumatoid arthritis
     Route: 065
  49. HYDROXYCHLOROQUINE SULFATE [Suspect]
     Active Substance: HYDROXYCHLOROQUINE SULFATE
     Indication: Rheumatoid arthritis
     Route: 048
  50. HYDROXYCHLOROQUINE SULFATE [Suspect]
     Active Substance: HYDROXYCHLOROQUINE SULFATE
     Route: 048
  51. HYDROXYCHLOROQUINE SULFATE [Suspect]
     Active Substance: HYDROXYCHLOROQUINE SULFATE
     Route: 048
  52. HYDROXYCHLOROQUINE SULFATE [Suspect]
     Active Substance: HYDROXYCHLOROQUINE SULFATE
     Route: 048
  53. INDOMETHACIN [Suspect]
     Active Substance: INDOMETHACIN
     Indication: Product used for unknown indication
     Route: 065
  54. ISOPROPYL ALCOHOL [Suspect]
     Active Substance: ISOPROPYL ALCOHOL
     Indication: Product used for unknown indication
     Route: 065
  55. NAPROXEN SODIUM [Suspect]
     Active Substance: NAPROXEN SODIUM
     Indication: Rheumatoid arthritis
     Route: 065
  56. PANTOPRAZOLE SODIUM [Suspect]
     Active Substance: PANTOPRAZOLE SODIUM
     Indication: Product used for unknown indication
     Route: 048
  57. PANTOPRAZOLE SODIUM [Suspect]
     Active Substance: PANTOPRAZOLE SODIUM
     Route: 048
  58. STELARA [Suspect]
     Active Substance: USTEKINUMAB
     Indication: Product used for unknown indication
     Route: 058
  59. TOCILIZUMAB [Suspect]
     Active Substance: TOCILIZUMAB
     Indication: Rheumatoid arthritis
     Route: 042
  60. TOFACITINIB CITRATE [Suspect]
     Active Substance: TOFACITINIB CITRATE
     Indication: Rheumatoid arthritis
     Dosage: 5 MG, QW
     Route: 065
  61. TOFACITINIB CITRATE [Suspect]
     Active Substance: TOFACITINIB CITRATE
     Dosage: 10 MG, QW
     Route: 065
  62. TOFACITINIB CITRATE [Suspect]
     Active Substance: TOFACITINIB CITRATE
     Route: 065
  63. TOFACITINIB CITRATE [Suspect]
     Active Substance: TOFACITINIB CITRATE
     Route: 065
  64. CHLORHEXIDINE GLUCONATE\ISOPROPYL ALCOHOL [Suspect]
     Active Substance: CHLORHEXIDINE GLUCONATE\ISOPROPYL ALCOHOL
     Indication: Product used for unknown indication
     Route: 065
  65. DICLOFENAC POTASSIUM [Suspect]
     Active Substance: DICLOFENAC POTASSIUM
     Indication: Product used for unknown indication
     Route: 065
  66. DICLOFENAC POTASSIUM [Suspect]
     Active Substance: DICLOFENAC POTASSIUM
     Route: 048
  67. PSEUDOEPHEDRINE [Suspect]
     Active Substance: PSEUDOEPHEDRINE
     Indication: Rheumatoid arthritis
     Route: 065
  68. REMICADE [Suspect]
     Active Substance: INFLIXIMAB
     Indication: Rheumatoid arthritis
     Route: 042
  69. REMICADE [Suspect]
     Active Substance: INFLIXIMAB
     Indication: Psoriatic arthropathy
     Route: 042
  70. REMICADE [Suspect]
     Active Substance: INFLIXIMAB
     Indication: Psoriasis
     Route: 065
  71. REMICADE [Suspect]
     Active Substance: INFLIXIMAB
     Indication: Crohn^s disease
  72. REMICADE [Suspect]
     Active Substance: INFLIXIMAB
     Indication: Ankylosing spondylitis
  73. ENTYVIO [Suspect]
     Active Substance: VEDOLIZUMAB
     Indication: Product used for unknown indication
     Route: 065
  74. VITAMIN D3 [Suspect]
     Active Substance: CHOLECALCIFEROL
     Indication: Product used for unknown indication
     Route: 065
  75. CHOLECALCIFEROL [Suspect]
     Active Substance: CHOLECALCIFEROL
     Indication: Product used for unknown indication
     Route: 065
  76. SULFASALAZINE [Suspect]
     Active Substance: SULFASALAZINE
     Indication: Product used for unknown indication
     Route: 065
  77. FISH OIL [Concomitant]
     Active Substance: FISH OIL
     Indication: Product used for unknown indication
     Route: 065
  78. CALCIUM GLUCONATE [Concomitant]
     Active Substance: CALCIUM GLUCONATE
     Indication: Product used for unknown indication
     Route: 065
  79. VITAMIN C [Concomitant]
     Active Substance: ASCORBIC ACID
     Indication: Product used for unknown indication
     Route: 065
  80. TYLENOL WITH CODEINE [Concomitant]
     Active Substance: ACETAMINOPHEN\CODEINE PHOSPHATE
     Indication: Product used for unknown indication
     Route: 065
  81. ZOPICLONE [Concomitant]
     Active Substance: ZOPICLONE
     Indication: Product used for unknown indication
     Route: 065
  82. LANSOPRAZOLE [Concomitant]
     Active Substance: LANSOPRAZOLE
     Indication: Product used for unknown indication
     Route: 065
  83. GLUCOSAMINE [Concomitant]
     Active Substance: GLUCOSAMINE
     Indication: Product used for unknown indication
     Route: 065
  84. IBUPROFEN [Concomitant]
     Active Substance: IBUPROFEN
     Indication: Product used for unknown indication
     Route: 065

REACTIONS (53)
  - Infusion related reaction [Fatal]
  - Peripheral venous disease [Fatal]
  - Rheumatoid factor positive [Fatal]
  - Facet joint syndrome [Fatal]
  - Sleep disorder [Fatal]
  - Feeling hot [Fatal]
  - Muscle spasms [Fatal]
  - Fibromyalgia [Fatal]
  - Osteoarthritis [Fatal]
  - General physical health deterioration [Fatal]
  - Pain in extremity [Fatal]
  - Musculoskeletal pain [Fatal]
  - Inflammation [Fatal]
  - Injury [Fatal]
  - Asthenia [Fatal]
  - Joint range of motion decreased [Fatal]
  - Lung disorder [Fatal]
  - Adjustment disorder with depressed mood [Fatal]
  - Bursitis [Fatal]
  - Condition aggravated [Fatal]
  - Porphyria acute [Fatal]
  - Blood cholesterol increased [Fatal]
  - Abdominal pain upper [Fatal]
  - Amnesia [Fatal]
  - Chest pain [Fatal]
  - Decreased appetite [Fatal]
  - Depression [Fatal]
  - Diarrhoea [Fatal]
  - Drug hypersensitivity [Fatal]
  - Dry mouth [Fatal]
  - Frequent bowel movements [Fatal]
  - Headache [Fatal]
  - Hypertension [Fatal]
  - Insomnia [Fatal]
  - Lip dry [Fatal]
  - Liver disorder [Fatal]
  - Oedema peripheral [Fatal]
  - Oedema [Fatal]
  - Paraesthesia [Fatal]
  - Rectal haemorrhage [Fatal]
  - Urticaria [Fatal]
  - Weight increased [Fatal]
  - Night sweats [Fatal]
  - Rheumatic fever [Fatal]
  - Delirium [Fatal]
  - Wound infection [Fatal]
  - Dizziness [Fatal]
  - C-reactive protein abnormal [Fatal]
  - Obesity [Fatal]
  - Drug intolerance [Fatal]
  - Contraindicated product administered [Unknown]
  - Drug ineffective [Unknown]
  - Therapeutic product effect decreased [Unknown]
